FAERS Safety Report 16595828 (Version 1)
Quarter: 2019Q3

REPORT INFORMATION
  Report Type: Spontaneous
  Country: DE (occurrence: DE)
  Receive Date: 20190719
  Receipt Date: 20190719
  Transmission Date: 20191004
  Serious: Yes (Life-Threatening, Hospitalization, Other)
  Sender: FDA-Public Use
  Company Number: DE-TEVA-2019-DE-1077975

PATIENT
  Age: 86 Year
  Sex: Male
  Weight: 74 kg

DRUGS (13)
  1. SITAGLIPTIN [Concomitant]
     Active Substance: SITAGLIPTIN
     Dosage: 50 MG, 1-0-0-0, TABLET
     Route: 048
  2. BICANORM [Concomitant]
     Active Substance: SODIUM BICARBONATE
     Dosage: 1 G, 1-0-0-0, TABLET
     Route: 048
  3. URAPIDIL [Concomitant]
     Active Substance: URAPIDIL
     Dosage: 60 MG, 1-0-1-0, PROLONGED-RELEASE TABLETS
     Route: 048
  4. AMLODIPIN [Concomitant]
     Active Substance: AMLODIPINE BESYLATE
     Dosage: 5 MG, 1-0-1-0, TABLET
     Route: 048
  5. DICLOFENAC [Suspect]
     Active Substance: DICLOFENAC
     Dosage: NK MG, NK, TABLET
     Route: 048
  6. LAXOBERAL 7,5MG [Concomitant]
     Dosage: 7.5 MG/ML, DEMAND, DROPS
     Route: 048
  7. ENTRESTO 49MG/51MG [Concomitant]
     Dosage: 49|51 MG, 1-0-1-0, TABLET
     Route: 048
  8. BETAHISTIN [Concomitant]
     Active Substance: BETAHISTINE
     Dosage: 60 MG, 0-0-1-0, TABLET
     Route: 048
  9. ACETYLSALICYLSAURE [Suspect]
     Active Substance: ASPIRIN
     Dosage: 100 MG, 1-0-0-0, TABLET
     Route: 048
  10. VIGANTOL 20000I.E. [Concomitant]
     Dosage: 20000 IU, 1-0-0-0 EVERY 2 WEEKS, CAPSULES
     Route: 048
  11. TAMSULOSIN [Concomitant]
     Active Substance: TAMSULOSIN
     Dosage: 0.4 MG, 0-0-1-0, TABLET
     Route: 048
  12. PREGABALIN. [Concomitant]
     Active Substance: PREGABALIN
     Dosage: 25 MG, 0-0-1-0, CAPSULES
     Route: 048
  13. TORASEMID [Concomitant]
     Active Substance: TORSEMIDE
     Dosage: 10 MG, 2-2-0-0, TABLET
     Route: 048

REACTIONS (4)
  - Renal impairment [Unknown]
  - Hypertension [Unknown]
  - Product prescribing error [Unknown]
  - Haematochezia [Unknown]
